FAERS Safety Report 17069015 (Version 1)
Quarter: 2019Q4

REPORT INFORMATION
  Report Type: Spontaneous
  Country: US (occurrence: US)
  Receive Date: 20191025
  Receipt Date: 20191025
  Transmission Date: 20200122
  Serious: No
  Sender: FDA-Public Use
  Company Number: None

PATIENT
  Age: 78 Year
  Sex: Male

DRUGS (1)
  1. GLATIRAMER ACETATE 40 MG/ML MYLAN [Suspect]
     Active Substance: GLATIRAMER ACETATE
     Indication: MULTIPLE SCLEROSIS
     Route: 048
     Dates: start: 20110228

REACTIONS (2)
  - Respiratory tract infection [None]
  - Bronchitis [None]

NARRATIVE: CASE EVENT DATE: 201908
